FAERS Safety Report 13826324 (Version 38)
Quarter: 2020Q4

REPORT INFORMATION
  Report Type: Spontaneous
  Country: CA (occurrence: CA)
  Receive Date: 20170802
  Receipt Date: 20201218
  Transmission Date: 20210113
  Serious: Yes (Hospitalization, Other)
  Sender: FDA-Public Use
  Company Number: CA-CELLTRION INC.-2017CA009950

PATIENT

DRUGS (29)
  1. INFLECTRA [Suspect]
     Active Substance: INFLIXIMAB-DYYB
     Indication: CROHN^S DISEASE
     Dosage: 350 MG, AT 0, 2, 6 WEEKS, THEN EVERY 8 WEEKS
     Route: 042
     Dates: start: 20170711, end: 20171213
  2. INFLECTRA [Suspect]
     Active Substance: INFLIXIMAB-DYYB
     Dosage: 600 MG, AT 4 WEEKS THEN EVERY 6 WEEKS
     Route: 042
     Dates: start: 20200514
  3. INFLECTRA [Suspect]
     Active Substance: INFLIXIMAB-DYYB
     Dosage: 600 MG, AT 4 WEEKS THEN EVERY 6 WEEKS
     Route: 042
     Dates: start: 20200806
  4. METHOTREXATE. [Concomitant]
     Active Substance: METHOTREXATE
     Dosage: 25 MG, UNK
     Route: 058
     Dates: start: 201610
  5. HYDROXYCHLOROQUINE [Concomitant]
     Active Substance: HYDROXYCHLOROQUINE
     Dosage: UNK, ONCE DAILY
     Dates: start: 201612
  6. INFLECTRA [Suspect]
     Active Substance: INFLIXIMAB-DYYB
     Dosage: 365 MG, EVERY 8 WEEKS
     Route: 042
     Dates: start: 20180801
  7. INFLECTRA [Suspect]
     Active Substance: INFLIXIMAB-DYYB
     Dosage: 365 MG, EVERY 8 WEEKS
     Route: 042
     Dates: start: 20190320
  8. INFLECTRA [Suspect]
     Active Substance: INFLIXIMAB-DYYB
     Dosage: 600 MG, AT 4 WEEKS THEN EVERY 6 WEEKS
     Route: 042
     Dates: start: 20200109
  9. INFLECTRA [Suspect]
     Active Substance: INFLIXIMAB-DYYB
     Dosage: 600 MG, AT 4 WEEKS THEN EVERY 6 WEEKS
     Route: 042
     Dates: start: 20200625
  10. INFLECTRA [Suspect]
     Active Substance: INFLIXIMAB-DYYB
     Dosage: 600 MG, AT 4 WEEKS THEN EVERY 6 WEEKS
     Route: 042
     Dates: start: 20201029
  11. ASACOL [Concomitant]
     Active Substance: MESALAMINE
     Dosage: UNK
     Route: 065
  12. ACETAMINOPHEN. [Concomitant]
     Active Substance: ACETAMINOPHEN
     Indication: PREMEDICATION
     Dosage: 650 MG
     Dates: start: 20200625, end: 20200625
  13. INFLECTRA [Suspect]
     Active Substance: INFLIXIMAB-DYYB
     Dosage: 600 MG, AT 4 WEEKS THEN EVERY 6 WEEKS
     Route: 042
     Dates: start: 20201210
  14. INFLECTRA [Suspect]
     Active Substance: INFLIXIMAB-DYYB
     Dosage: 365 MG, EVERY 8 WEEKS
     Route: 042
     Dates: start: 20190515
  15. INFLECTRA [Suspect]
     Active Substance: INFLIXIMAB-DYYB
     Dosage: 350 MG, AT 0, 2, 6 WEEKS, THEN EVERY 8 WEEKS
     Route: 042
     Dates: start: 20171213
  16. INFLECTRA [Suspect]
     Active Substance: INFLIXIMAB-DYYB
     Dosage: 365 MG, EVERY 8 WEEKS
     Route: 042
     Dates: start: 20180607
  17. INFLECTRA [Suspect]
     Active Substance: INFLIXIMAB-DYYB
     Dosage: 365 MG, EVERY 8 WEEKS
     Route: 042
     Dates: start: 20190710
  18. INFLECTRA [Suspect]
     Active Substance: INFLIXIMAB-DYYB
     Dosage: 365 MG, EVERY 8 WEEKS
     Route: 042
     Dates: start: 20191030
  19. INFLECTRA [Suspect]
     Active Substance: INFLIXIMAB-DYYB
     Dosage: 365 MG, EVERY 8 WEEKS
     Route: 042
     Dates: start: 20180404
  20. INFLECTRA [Suspect]
     Active Substance: INFLIXIMAB-DYYB
     Dosage: 600 MG, AT 4 WEEKS THEN EVERY 6 WEEKS
     Route: 042
     Dates: start: 20200402
  21. DIMENHYDRINATE. [Concomitant]
     Active Substance: DIMENHYDRINATE
     Indication: PREMEDICATION
     Dosage: 50 MG
     Dates: start: 20200625, end: 20200625
  22. INFLECTRA [Suspect]
     Active Substance: INFLIXIMAB-DYYB
     Dosage: 365 MG, EVERY 8 WEEKS
     Route: 042
     Dates: start: 20180926
  23. INFLECTRA [Suspect]
     Active Substance: INFLIXIMAB-DYYB
     Dosage: 365 MG, EVERY 8 WEEKS
     Route: 042
     Dates: start: 20190116
  24. OXYBUTYNIN. [Concomitant]
     Active Substance: OXYBUTYNIN CHLORIDE
     Dosage: UNK, FOR 6 MONTHS
     Dates: start: 20191210
  25. DIPHENHYDRAMINE. [Concomitant]
     Active Substance: DIPHENHYDRAMINE
     Indication: PREMEDICATION
     Dosage: 50 MG
     Dates: start: 20200625, end: 20200625
  26. INFLECTRA [Suspect]
     Active Substance: INFLIXIMAB-DYYB
     Dosage: 365 MG, EVERY 8 WEEKS
     Route: 042
     Dates: start: 20180207, end: 20191030
  27. INFLECTRA [Suspect]
     Active Substance: INFLIXIMAB-DYYB
     Dosage: 365 MG, EVERY 8 WEEKS
     Route: 042
     Dates: start: 20181121, end: 20181121
  28. INFLECTRA [Suspect]
     Active Substance: INFLIXIMAB-DYYB
     Dosage: 365 MG, EVERY 8 WEEKS
     Route: 042
     Dates: start: 20190903
  29. INFLECTRA [Suspect]
     Active Substance: INFLIXIMAB-DYYB
     Dosage: 600 MG, AT 4 WEEKS THEN EVERY 6 WEEKS
     Route: 042
     Dates: start: 20200917

REACTIONS (47)
  - Hypersomnia [Unknown]
  - Gait disturbance [Not Recovered/Not Resolved]
  - Fall [Not Recovered/Not Resolved]
  - Blood pressure decreased [Unknown]
  - Feeling hot [Unknown]
  - Incorrect dose administered [Unknown]
  - Therapeutic product effect incomplete [Not Recovered/Not Resolved]
  - Vulvovaginal mycotic infection [Unknown]
  - Nausea [Unknown]
  - Off label use [Unknown]
  - Infection [Unknown]
  - Skin infection [Not Recovered/Not Resolved]
  - Dizziness [Recovered/Resolved]
  - Fatigue [Not Recovered/Not Resolved]
  - Synovitis [Unknown]
  - Thyroid disorder [Not Recovered/Not Resolved]
  - Nephrolithiasis [Unknown]
  - Drug level decreased [Unknown]
  - Abdominal pain [Not Recovered/Not Resolved]
  - Limb discomfort [Not Recovered/Not Resolved]
  - Arthralgia [Unknown]
  - Peripheral swelling [Not Recovered/Not Resolved]
  - Pyrexia [Recovered/Resolved]
  - Acute febrile neutrophilic dermatosis [Not Recovered/Not Resolved]
  - Pain in extremity [Not Recovered/Not Resolved]
  - Abdominal distension [Not Recovered/Not Resolved]
  - Poor venous access [Not Recovered/Not Resolved]
  - Hypoaesthesia [Not Recovered/Not Resolved]
  - Asthenia [Unknown]
  - Urinary tract infection [Unknown]
  - Tooth fracture [Unknown]
  - Vomiting [Recovered/Resolved]
  - Pneumonia [Recovered/Resolved]
  - Skin lesion [Not Recovered/Not Resolved]
  - Wound abscess [Unknown]
  - Blood pressure increased [Unknown]
  - Toothache [Unknown]
  - Diarrhoea haemorrhagic [Unknown]
  - X-ray abnormal [Unknown]
  - Erythema nodosum [Unknown]
  - Vertigo [Unknown]
  - Weight increased [Unknown]
  - Inappropriate schedule of product administration [Unknown]
  - Condition aggravated [Not Recovered/Not Resolved]
  - Osteoporosis [Not Recovered/Not Resolved]
  - Off label use [Unknown]
  - Intentional product use issue [Unknown]

NARRATIVE: CASE EVENT DATE: 201708
